FAERS Safety Report 18766078 (Version 1)
Quarter: 2021Q1

REPORT INFORMATION
  Report Type: Spontaneous
  Country: US (occurrence: US)
  Receive Date: 20210120
  Receipt Date: 20210120
  Transmission Date: 20210419
  Serious: Yes (Other)
  Sender: FDA-Public Use
  Company Number: US-BRISTOL-MYERS SQUIBB COMPANY-BMS-2021-001990

PATIENT
  Age: 64 Year
  Sex: Female
  Weight: 120.2 kg

DRUGS (2)
  1. COUMADIN [Suspect]
     Active Substance: WARFARIN SODIUM
     Indication: CARDIAC VALVE DISEASE
     Dosage: 2MG, 3 1/2 TABLETS BY MOUTH ONCE DAILY IN THE EVENING AT 5:30PM (TOTAL 7MG)
     Route: 048
  2. PFIZER?BIONTECH COVID?19 VACCINE [Suspect]
     Active Substance: TOZINAMERAN
     Indication: PROPHYLAXIS
     Dosage: UNABLE TO PROVIDE DOSE, ADMINISTERED TO LEFT ARM/DELTOID AT ABOUT 1: 15PM
     Route: 050
     Dates: start: 20201229

REACTIONS (2)
  - International normalised ratio increased [Not Recovered/Not Resolved]
  - Wound haemorrhage [Unknown]

NARRATIVE: CASE EVENT DATE: 202101
